FAERS Safety Report 24915259 (Version 1)
Quarter: 2025Q1

REPORT INFORMATION
  Report Type: Spontaneous
  Country: US (occurrence: US)
  Receive Date: 20250203
  Receipt Date: 20250203
  Transmission Date: 20250409
  Serious: Yes (Hospitalization)
  Sender: GRIFOLS
  Company Number: US-IGSA-BIG0032781

PATIENT
  Age: 49 Year
  Sex: Female
  Weight: 149.66 kg

DRUGS (16)
  1. PROLASTIN-C LIQUID [Suspect]
     Active Substance: .ALPHA.1-PROTEINASE INHIBITOR HUMAN
     Indication: Alpha-1 antitrypsin deficiency
     Dosage: 9711 MILLIGRAM, Q.WK.
     Route: 042
     Dates: start: 20250120
  2. PROLASTIN-C LIQUID [Suspect]
     Active Substance: .ALPHA.1-PROTEINASE INHIBITOR HUMAN
     Dosage: 9711 MILLIGRAM, Q.WK.
     Route: 042
     Dates: start: 20241015
  3. BUMETANIDE ACTAVIS [Concomitant]
  4. PRAVASTATIN SODIUM [Concomitant]
     Active Substance: PRAVASTATIN SODIUM
  5. VENTOLIN HFA [Concomitant]
     Active Substance: ALBUTEROL SULFATE
  6. LISINOPRIL [Concomitant]
     Active Substance: LISINOPRIL
  7. TEZSPIRE [Concomitant]
     Active Substance: TEZEPELUMAB-EKKO
  8. KLONOPIN [Concomitant]
     Active Substance: CLONAZEPAM
  9. DILTIAZEM HYDROCHLORIDE [Concomitant]
     Active Substance: DILTIAZEM HYDROCHLORIDE
  10. GABAPENTIN [Concomitant]
     Active Substance: GABAPENTIN
  11. TRINTELLIX [Concomitant]
     Active Substance: VORTIOXETINE HYDROBROMIDE
  12. LYBALIN [Concomitant]
  13. TOPIRAMATE [Concomitant]
     Active Substance: TOPIRAMATE
  14. MELOXICAM AL [Concomitant]
  15. SINGULAIR [Concomitant]
     Active Substance: MONTELUKAST SODIUM
  16. CHLORMEZANONE [Concomitant]
     Active Substance: CHLORMEZANONE

REACTIONS (3)
  - Asthenia [Recovering/Resolving]
  - Mental disorder [Recovering/Resolving]
  - Loss of consciousness [Recovering/Resolving]

NARRATIVE: CASE EVENT DATE: 20250121
